FAERS Safety Report 4443921-6 (Version None)
Quarter: 2004Q3

REPORT INFORMATION
  Report Type: 
  Country: None (occurrence: None)
  Receive Date: 20040908
  Receipt Date: 20040827
  Transmission Date: 20050211
  Serious: Yes (Hospitalization)
  Sender: FDA-Public Use
  Company Number: CH-BRISTOL-MYERS SQUIBB COMPANY-12685285

PATIENT
  Age: 70 Year
  Sex: Female
  Weight: 110 kg

DRUGS (5)
  1. CARBOPLATIN [Suspect]
     Indication: CARCINOMA IN SITU
     Route: 041
     Dates: start: 20040308, end: 20040308
  2. PERFALGAN IV [Suspect]
     Indication: PAIN
     Route: 041
     Dates: start: 20040418, end: 20040420
  3. DAFALGAN TABS 1 GM [Suspect]
     Indication: PAIN
     Route: 048
     Dates: start: 20040414, end: 20040417
  4. GEMZAR [Suspect]
     Indication: CARCINOMA IN SITU
     Dosage: FIRST DOSE 08-MAR-2004
     Route: 041
     Dates: start: 20040315, end: 20040315
  5. AUGMENTIN '250' [Suspect]
     Indication: BACTERIAL INFECTION
     Route: 042
     Dates: start: 20040418, end: 20040422

REACTIONS (1)
  - HEPATITIS CHOLESTATIC [None]
